FAERS Safety Report 16783980 (Version 1)
Quarter: 2019Q3

REPORT INFORMATION
  Report Type: Report from Study
  Country: CA (occurrence: CA)
  Receive Date: 20190909
  Receipt Date: 20190909
  Transmission Date: 20191005
  Serious: Yes (Other)
  Sender: FDA-Public Use
  Company Number: CA-AMGEN-CANCT2019060269

PATIENT
  Age: 50 Year
  Sex: Female

DRUGS (4)
  1. MIRTAZAPINE. [Suspect]
     Active Substance: MIRTAZAPINE
     Indication: PRODUCT USED FOR UNKNOWN INDICATION
     Dosage: UNK
     Route: 065
     Dates: start: 20190311
  2. AIMOVIG [Suspect]
     Active Substance: ERENUMAB-AOOE
     Dosage: UNK
     Route: 065
     Dates: start: 201904
  3. AIMOVIG [Suspect]
     Active Substance: ERENUMAB-AOOE
     Dosage: 70 MILLIGRAM, QMO
     Route: 058
     Dates: start: 20190315
  4. AIMOVIG [Suspect]
     Active Substance: ERENUMAB-AOOE
     Indication: MIGRAINE
     Dosage: UNK
     Route: 065
     Dates: start: 20190226

REACTIONS (12)
  - Depressed level of consciousness [Unknown]
  - Fatigue [Not Recovered/Not Resolved]
  - Sinusitis [Unknown]
  - Somnolence [Unknown]
  - Upper respiratory tract infection [Unknown]
  - Vertigo [Unknown]
  - Sedation [Unknown]
  - Nasopharyngitis [Unknown]
  - Influenza [Unknown]
  - Dizziness [Unknown]
  - Asthenia [Unknown]
  - Malaise [Unknown]

NARRATIVE: CASE EVENT DATE: 201904
